FAERS Safety Report 22190785 (Version 1)
Quarter: 2023Q2

REPORT INFORMATION
  Report Type: Spontaneous
  Country: US (occurrence: US)
  Receive Date: 20230410
  Receipt Date: 20230410
  Transmission Date: 20230721
  Serious: No
  Sender: FDA-Public Use
  Company Number: US-002147023-NVSC2023US082101

PATIENT
  Age: 71 Year
  Sex: Female

DRUGS (2)
  1. LEQVIO [Suspect]
     Active Substance: INCLISIRAN SODIUM
     Indication: Low density lipoprotein increased
     Dosage: 300 MG (GIVE FIRST DOSE)
     Route: 058
  2. LEQVIO [Suspect]
     Active Substance: INCLISIRAN SODIUM
     Dosage: UNK (SECOND DOSE 90 DAYS LATER)
     Route: 065

REACTIONS (2)
  - Injection site rash [Recovered/Resolved]
  - Injection site erythema [Recovered/Resolved]
